FAERS Safety Report 17926146 (Version 1)
Quarter: 2020Q2

REPORT INFORMATION
  Report Type: Spontaneous
  Country: US (occurrence: US)
  Receive Date: 20200623
  Receipt Date: 20200623
  Transmission Date: 20200714
  Serious: Yes (Other)
  Sender: FDA-Public Use
  Company Number: US-ROCHE-2628104

PATIENT
  Sex: Male

DRUGS (1)
  1. XOLAIR [Suspect]
     Active Substance: OMALIZUMAB
     Indication: IDIOPATHIC URTICARIA
     Dosage: 150 MG
     Route: 058
     Dates: start: 20200519

REACTIONS (4)
  - Insomnia [Unknown]
  - Joint swelling [Unknown]
  - Oropharyngeal pain [Unknown]
  - Tonsillitis [Unknown]
